FAERS Safety Report 8150020 (Version 5)
Quarter: 2013Q3

REPORT INFORMATION
  Report Type: Spontaneous
  Country: US (occurrence: US)
  Receive Date: 20110922
  Receipt Date: 20130905
  Transmission Date: 20140515
  Serious: Yes (Hospitalization)
  Sender: FDA-Public Use
  Company Number: US-GLAXOSMITHKLINE-A0915641A

PATIENT
  Age: 48 Year
  Sex: Female

DRUGS (2)
  1. AVANDIA [Suspect]
     Indication: DIABETES MELLITUS
     Dosage: 8MG PER DAY
     Route: 048
     Dates: start: 20001027, end: 200509
  2. AVANDAMET [Suspect]
     Indication: DIABETES MELLITUS
     Route: 048
     Dates: start: 20050930

REACTIONS (15)
  - Myocardial infarction [Not Recovered/Not Resolved]
  - Cardiomyopathy [Unknown]
  - Cardiac failure congestive [Unknown]
  - Pulmonary oedema [Unknown]
  - Ischaemic cardiomyopathy [Unknown]
  - Transient ischaemic attack [Unknown]
  - Syncope [Unknown]
  - Coronary artery disease [Unknown]
  - Angiogram abnormal [Unknown]
  - Angioplasty [Unknown]
  - Stent placement [Unknown]
  - Coronary artery bypass [Unknown]
  - Catheterisation cardiac [Unknown]
  - Angina pectoris [Unknown]
  - Arrhythmia [Unknown]
